FAERS Safety Report 9485168 (Version 2)
Quarter: 2013Q4

REPORT INFORMATION
  Report Type: Report from Study
  Country: US (occurrence: US)
  Receive Date: 20130828
  Receipt Date: 20131111
  Transmission Date: 20140711
  Serious: Yes (Death)
  Sender: FDA-Public Use
  Company Number: GXBR2013US001610

PATIENT
  Sex: Male
  Weight: 88.66 kg

DRUGS (1)
  1. ENOXAPARIN SODIUM [Suspect]
     Indication: PULMONARY EMBOLISM
     Dosage: 90 MG, BID
     Route: 058
     Dates: start: 20130509, end: 20130708

REACTIONS (2)
  - Malignant neoplasm progression [Fatal]
  - Fall [Unknown]
